FAERS Safety Report 4762785-4 (Version None)
Quarter: 2005Q3

REPORT INFORMATION
  Report Type: 
  Country: None (occurrence: None)
  Receive Date: 20050907
  Receipt Date: 20050829
  Transmission Date: 20060218
  Serious: Yes (Hospitalization)
  Sender: FDA-Public Use
  Company Number: US-JNJFOC-20050806892

PATIENT
  Age: 46 Year
  Sex: Female
  Weight: 99.79 kg

DRUGS (6)
  1. FENTANYL [Suspect]
     Route: 062
  2. NEURONTIN [Concomitant]
     Indication: NEUROPATHY
  3. ELAVIL [Concomitant]
     Indication: DRUG USE FOR UNKNOWN INDICATION
  4. DOLOBID [Concomitant]
     Indication: DRUG USE FOR UNKNOWN INDICATION
  5. ULTRACET [Concomitant]
     Indication: PAIN
  6. ATIVAN [Concomitant]
     Indication: DRUG USE FOR UNKNOWN INDICATION

REACTIONS (6)
  - BLOOD POTASSIUM DECREASED [None]
  - DEHYDRATION [None]
  - DRUG WITHDRAWAL SYNDROME [None]
  - HAEMATEMESIS [None]
  - HYPERHIDROSIS [None]
  - VOMITING [None]
